FAERS Safety Report 5132361-2 (Version None)
Quarter: 2006Q4

REPORT INFORMATION
  Report Type: 
  Country: None (occurrence: None)
  Receive Date: 20061023
  Receipt Date: 20061010
  Transmission Date: 20070319
  Serious: Yes (Hospitalization)
  Sender: FDA-Public Use
  Company Number: PHEH2006US12882

PATIENT
  Age: 70 Year
  Sex: Male

DRUGS (4)
  1. AMLODIPINE BESYLATE [Concomitant]
  2. PIOGLITAZONE HCL [Concomitant]
  3. METFORMIN HCL [Concomitant]
  4. DIOVAN [Suspect]
     Indication: HYPERTENSION
     Dosage: 160 MG, BID

REACTIONS (5)
  - BACK PAIN [None]
  - DYSURIA [None]
  - NEPHROLITHIASIS [None]
  - PAIN [None]
  - SURGERY [None]
